FAERS Safety Report 12451430 (Version 2)
Quarter: 2016Q3

REPORT INFORMATION
  Report Type: Report from Study
  Country: IE (occurrence: IE)
  Receive Date: 20160609
  Receipt Date: 20160906
  Transmission Date: 20161109
  Serious: Yes (Hospitalization)
  Sender: FDA-Public Use
  Company Number: IE-BAYER-2016-105446

PATIENT
  Age: 69 Year
  Sex: Male

DRUGS (1)
  1. NEXAVAR [Suspect]
     Active Substance: SORAFENIB
     Indication: HEPATOCELLULAR CARCINOMA
     Dosage: 200 MG, BID
     Route: 048
     Dates: start: 20160513

REACTIONS (4)
  - Hepatocellular carcinoma [None]
  - Hiccups [None]
  - Blood count abnormal [None]
  - Haemoglobin decreased [None]

NARRATIVE: CASE EVENT DATE: 20160528
